FAERS Safety Report 21696207 (Version 2)
Quarter: 2022Q4

REPORT INFORMATION
  Report Type: Spontaneous
  Country: US (occurrence: US)
  Receive Date: 20221207
  Receipt Date: 20221209
  Transmission Date: 20230112
  Serious: Yes (Other)
  Sender: FDA-Public Use
  Company Number: US-PFIZER INC-202201356532

PATIENT
  Age: 78 Year
  Sex: Female
  Weight: 63.5 kg

DRUGS (2)
  1. PAXLOVID [Suspect]
     Active Substance: NIRMATRELVIR\RITONAVIR
     Indication: COVID-19 treatment
     Dosage: 3 DF, 2X/DAY (300MG/100MG THREE TABLETS BY MOUTH TWICE A DAY FOR FIVE DAYS)
     Route: 048
     Dates: start: 20221205
  2. AMLODIPINE BESYLATE [Concomitant]
     Active Substance: AMLODIPINE BESYLATE
     Indication: Hypertension
     Dosage: 5 MG, 2X/DAY (5MG IN THE MORNING AND 5MG IN THE EVENING BY MOUTH)
     Route: 048

REACTIONS (4)
  - Dysentery [Unknown]
  - Diarrhoea [Unknown]
  - Asthenia [Unknown]
  - Muscular weakness [Unknown]

NARRATIVE: CASE EVENT DATE: 20221201
